FAERS Safety Report 6790477-9 (Version None)
Quarter: 2010Q2

REPORT INFORMATION
  Report Type: 
  Country: None (occurrence: None)
  Receive Date: 20100624
  Receipt Date: 20100610
  Transmission Date: 20101027
  Serious: Yes (Death, Other)
  Sender: FDA-Public Use
  Company Number: TR-ROCHE-706890

PATIENT
  Age: 36 Year
  Sex: Female

DRUGS (6)
  1. GANCICLOVIR SODIUM [Suspect]
     Dosage: INDUCTION DOSE
     Route: 042
  2. GANCICLOVIR [Suspect]
     Dosage: MAINTENANCE THERAPY
     Route: 048
  3. NELFINAVIR [Suspect]
     Indication: HIV INFECTION
     Route: 065
  4. STAVUDINE [Suspect]
     Indication: HIV INFECTION
     Route: 065
  5. ZIDOVUDINE [Suspect]
     Indication: HIV INFECTION
     Route: 065
  6. DIDANOSINE [Suspect]
     Indication: HIV INFECTION
     Route: 065

REACTIONS (3)
  - DRUG INEFFECTIVE [None]
  - LUNG DISORDER [None]
  - UVEITIS [None]
